FAERS Safety Report 7073393-7 (Version None)
Quarter: 2010Q4

REPORT INFORMATION
  Report Type: 
  Country: None (occurrence: None)
  Receive Date: 20101029
  Receipt Date: 20100610
  Transmission Date: 20110411
  Serious: No
  Sender: FDA-Public Use
  Company Number: A0864289A

PATIENT
  Age: 83 Year
  Sex: Male

DRUGS (8)
  1. ADVAIR DISKUS 100/50 [Suspect]
     Indication: CHRONIC OBSTRUCTIVE PULMONARY DISEASE
     Dosage: 1PUFF TWICE PER DAY
     Route: 055
     Dates: start: 20100607
  2. LOVASTATIN [Concomitant]
  3. ASPIRIN [Concomitant]
  4. LISINOPRIL [Concomitant]
  5. FISH OIL [Concomitant]
  6. UNKNOWN MEDICATION [Concomitant]
     Indication: GOUT
  7. MULTIVITAMIN [Concomitant]
  8. VITAMIN TAB [Concomitant]

REACTIONS (6)
  - APHONIA [None]
  - DRY MOUTH [None]
  - FLUSHING [None]
  - INSOMNIA [None]
  - SKIN WARM [None]
  - SWELLING FACE [None]
